FAERS Safety Report 8026284-9 (Version None)
Quarter: 2012Q1

REPORT INFORMATION
  Report Type: 
  Country: None (occurrence: None)
  Receive Date: 20120105
  Receipt Date: 20111115
  Transmission Date: 20120608
  Serious: No
  Sender: FDA-Public Use
  Company Number: US-ABBOTT-11P-163-0874145-00

PATIENT
  Age: 77 Year
  Sex: Female

DRUGS (1)
  1. SYNTHROID [Suspect]
     Indication: HYPOTHYROIDISM
     Dates: end: 20111113

REACTIONS (4)
  - DISTURBANCE IN ATTENTION [None]
  - BLOOD GLUCOSE DECREASED [None]
  - ALOPECIA [None]
  - PSYCHOMOTOR HYPERACTIVITY [None]
